FAERS Safety Report 23889105 (Version 1)
Quarter: 2024Q2

REPORT INFORMATION
  Report Type: Report from Study
  Country: US (occurrence: US)
  Receive Date: 20240523
  Receipt Date: 20240523
  Transmission Date: 20240716
  Serious: Yes (Death)
  Sender: FDA-Public Use
  Company Number: US-BAYER-2024A073867

PATIENT
  Age: 70 Year
  Sex: Female
  Weight: 52.608 kg

DRUGS (24)
  1. ADEMPAS [Suspect]
     Active Substance: RIOCIGUAT
     Indication: Pulmonary arterial hypertension
     Dosage: UNK
     Dates: start: 20161110
  2. ADEMPAS [Suspect]
     Active Substance: RIOCIGUAT
     Indication: Pulmonary arterial hypertension
     Dosage: 2 MG, TID
     Route: 048
  3. XANAX [Concomitant]
     Active Substance: ALPRAZOLAM
  4. FUROSEMIDE [Concomitant]
     Active Substance: FUROSEMIDE
  5. ATORVASTATIN CALCIUM [Concomitant]
     Active Substance: ATORVASTATIN CALCIUM
  6. ESCITALOPRAM OXALATE [Concomitant]
     Active Substance: ESCITALOPRAM OXALATE
  7. POTASSIUM CHLORIDE [Concomitant]
     Active Substance: POTASSIUM CHLORIDE
  8. TRELEGY ELLIPTA [Concomitant]
     Active Substance: FLUTICASONE FUROATE\UMECLIDINIUM BROMIDE\VILANTEROL TRIFENATATE
  9. ATENOLOL [Concomitant]
     Active Substance: ATENOLOL
  10. OMEPRAZOLE [Concomitant]
     Active Substance: DONEPEZIL HYDROCHLORIDE\OMEPRAZOLE\OMEPRAZOLE MAGNESIUM
  11. VITAMINS [Concomitant]
     Active Substance: VITAMINS
  12. CARBOPLATIN [Concomitant]
     Active Substance: CARBOPLATIN
  13. PACLITAXEL [Concomitant]
     Active Substance: PACLITAXEL
  14. OPDIVO [Concomitant]
     Active Substance: NIVOLUMAB
  15. CLARITIN [Concomitant]
     Active Substance: LORATADINE
  16. BUPROPION HYDROCHLORIDE [Concomitant]
     Active Substance: BUPROPION HYDROCHLORIDE
  17. LEVOTHYROXINE [Concomitant]
     Active Substance: LEVOTHYROXINE\LEVOTHYROXINE SODIUM
  18. PREDNISONE [Concomitant]
     Active Substance: PREDNISONE
  19. IRON [Concomitant]
     Active Substance: IRON
  20. MAGNESIUM [Concomitant]
     Active Substance: MAGNESIUM
  21. GABAPENTIN [Concomitant]
     Active Substance: GABAPENTIN
  22. COVID-19 vaccine [Concomitant]
  23. CALCIUM CITRATE\VITAMIN D [Concomitant]
     Active Substance: CALCIUM CITRATE\VITAMIN D
  24. MUCINEX [Concomitant]
     Active Substance: GUAIFENESIN

REACTIONS (1)
  - Death [Fatal]

NARRATIVE: CASE EVENT DATE: 20240515
